FAERS Safety Report 11615205 (Version 3)
Quarter: 2015Q4

REPORT INFORMATION
  Report Type: Spontaneous
  Country: US (occurrence: US)
  Receive Date: 20151009
  Receipt Date: 20151029
  Transmission Date: 20160304
  Serious: No
  Sender: FDA-Public Use
  Company Number: US-PFIZER INC-2015334145

PATIENT
  Age: 63 Year
  Sex: Female
  Weight: 57 kg

DRUGS (10)
  1. LYRICA [Suspect]
     Active Substance: PREGABALIN
     Indication: FIBROMYALGIA
     Dosage: 75 MG, 2X/DAY (FOR A WEEK)
     Route: 048
     Dates: start: 201509
  2. XANAX [Interacting]
     Active Substance: ALPRAZOLAM
     Dosage: 1 MG, DAILY (NIGHT)
     Route: 048
     Dates: start: 20151004
  3. LYRICA [Interacting]
     Active Substance: PREGABALIN
     Dosage: 150 MG (WHITE CAPSULES), 2X/DAY
     Route: 048
     Dates: start: 20150908
  4. OMEPRAZOLE. [Concomitant]
     Active Substance: OMEPRAZOLE
     Indication: GASTROOESOPHAGEAL REFLUX DISEASE
  5. LYRICA [Interacting]
     Active Substance: PREGABALIN
     Dosage: 450 MG, DAILY (TAKES 150MG IN THE MORNING AND 300 MG AT NIGHT)
     Route: 048
  6. XANAX [Interacting]
     Active Substance: ALPRAZOLAM
     Indication: SLEEP DISORDER
     Dosage: 2 MG, DAILY (AT NIGHT)
     Route: 048
  7. LISINOPRIL. [Interacting]
     Active Substance: LISINOPRIL
     Indication: BLOOD PRESSURE ABNORMAL
     Dosage: 20 MG, UNK
  8. PROZAC [Concomitant]
     Active Substance: FLUOXETINE HYDROCHLORIDE
     Indication: FATIGUE
     Dosage: 20 MG, UNK
  9. PROZAC [Concomitant]
     Active Substance: FLUOXETINE HYDROCHLORIDE
     Indication: NEGATIVE THOUGHTS
  10. AMOXAPINE. [Concomitant]
     Active Substance: AMOXAPINE
     Indication: IRRITABLE BOWEL SYNDROME
     Dosage: 50 MG, 1X/DAY

REACTIONS (4)
  - Blood glucose abnormal [Unknown]
  - Intentional product use issue [Unknown]
  - Drug interaction [Unknown]
  - Drug ineffective [Unknown]

NARRATIVE: CASE EVENT DATE: 201509
